FAERS Safety Report 10163568 (Version 5)
Quarter: 2014Q3

REPORT INFORMATION
  Report Type: Report from Study
  Country: DE (occurrence: DE)
  Receive Date: 20140509
  Receipt Date: 20140710
  Transmission Date: 20150326
  Serious: Yes (Other)
  Sender: FDA-Public Use
  Company Number: PHHY2013DE081261

PATIENT
  Sex: Female

DRUGS (50)
  1. ROTIGOTINE [Concomitant]
     Active Substance: ROTIGOTINE
     Dates: start: 2011
  2. CLEXAN [Concomitant]
     Dates: start: 20130614, end: 20130614
  3. CLEXAN [Concomitant]
     Dates: start: 20140114, end: 20140114
  4. TRIAMCINOLON COMPO [Concomitant]
     Dosage: 40 MG, QD
     Dates: start: 20130313, end: 20130313
  5. TRIAMCINOLON COMPO [Concomitant]
     Dosage: 40 MG, QD
     Dates: start: 20140114, end: 20140114
  6. TRIAMCINOLON COMPO [Concomitant]
     Dosage: 40 MG, QD
     Dates: start: 20140430, end: 20140430
  7. OMEP [Concomitant]
     Active Substance: OMEPRAZOLE
     Dates: start: 20140114, end: 20140120
  8. MOVICOL [Concomitant]
     Active Substance: POLYETHYLENE GLYCOL 3350\POTASSIUM CHLORIDE\SODIUM BICARBONATE\SODIUM CHLORIDE
     Dates: start: 20140114, end: 20140117
  9. GILENYA [Suspect]
     Active Substance: FINGOLIMOD HYDROCHLORIDE
     Indication: MULTIPLE SCLEROSIS
     Dosage: 0.5 MG, PER DAY
     Route: 048
     Dates: start: 20111026, end: 20140509
  10. ZOLPIDEM [Concomitant]
     Active Substance: ZOLPIDEM\ZOLPIDEM TARTRATE
     Dates: start: 1995
  11. VALDOXAN [Concomitant]
     Active Substance: AGOMELATINE
     Dates: start: 2010
  12. CLEXAN [Concomitant]
     Dates: start: 20140116, end: 20140116
  13. TRIAMCINOLON COMPO [Concomitant]
     Dosage: 40 MG, QD
     Dates: start: 20130612, end: 20130612
  14. MOVICOL [Concomitant]
     Active Substance: POLYETHYLENE GLYCOL 3350\POTASSIUM CHLORIDE\SODIUM BICARBONATE\SODIUM CHLORIDE
     Dates: start: 20130612, end: 20130615
  15. GILENYA [Suspect]
     Active Substance: FINGOLIMOD HYDROCHLORIDE
     Dosage: 0.5 MG, PER DAY
     Route: 048
     Dates: start: 20140516
  16. PANTOZOL [Concomitant]
     Active Substance: PANTOPRAZOLE SODIUM
     Dates: start: 20130612, end: 20130615
  17. CLEXAN [Concomitant]
     Dates: start: 20131008, end: 20131008
  18. TRIAMCINOLON COMPO [Concomitant]
     Dosage: 40 MG, QD
     Dates: start: 20130612, end: 20130612
  19. COTRIM [Concomitant]
     Active Substance: SULFAMETHOXAZOLE\TRIMETHOPRIM
     Dates: start: 20130709, end: 20130710
  20. COTRIM [Concomitant]
     Active Substance: SULFAMETHOXAZOLE\TRIMETHOPRIM
     Dates: start: 20130711, end: 20130711
  21. PREDNISOLON [Concomitant]
     Active Substance: PREDNISOLONE
     Dates: start: 20140402, end: 20140402
  22. DOXYCYCLINE. [Concomitant]
     Active Substance: DOXYCYCLINE
     Dates: start: 20140512
  23. CLEXAN [Concomitant]
     Dates: start: 20130311, end: 20130311
  24. CLEXAN [Concomitant]
     Dates: start: 20130313, end: 20130313
  25. COTRIM [Concomitant]
     Active Substance: SULFAMETHOXAZOLE\TRIMETHOPRIM
     Dates: start: 20130708, end: 20130708
  26. OMEP [Concomitant]
     Active Substance: OMEPRAZOLE
     Dates: start: 20131008, end: 20131008
  27. OMEP [Concomitant]
     Active Substance: OMEPRAZOLE
     Dates: start: 20140428, end: 20140501
  28. CIPROFLOXACIN. [Concomitant]
     Active Substance: CIPROFLOXACIN
     Dates: start: 20140211, end: 20140216
  29. CLEXAN [Concomitant]
     Dates: start: 20140428, end: 20140501
  30. TRIAMCINOLON COMPO [Concomitant]
     Dosage: 40 MG, QD
     Dates: start: 20130311, end: 20130311
  31. TRIAMCINOLON COMPO [Concomitant]
     Dosage: 40 MG, QD
     Dates: start: 20130614, end: 20130614
  32. TRIAMCINOLON COMPO [Concomitant]
     Dosage: 40 MG, QD
     Dates: start: 20131008, end: 20131008
  33. TRIAMCINOLON COMPO [Concomitant]
     Dosage: 40 MG, QD
     Dates: start: 20131010, end: 20131010
  34. TRIAMCINOLON COMPO [Concomitant]
     Dosage: 40 MG, QD
     Dates: start: 20130313, end: 20130313
  35. PREDNISOLON [Concomitant]
     Active Substance: PREDNISOLONE
     Dates: start: 20140401, end: 20140401
  36. MACROGOL [Concomitant]
     Active Substance: POLYETHYLENE GLYCOLS
     Dates: start: 20130311, end: 20130313
  37. LEVOFLOXACIN [Concomitant]
     Active Substance: LEVOFLOXACIN
     Dates: start: 20130712, end: 20130717
  38. MOVICOL [Concomitant]
     Active Substance: POLYETHYLENE GLYCOL 3350\POTASSIUM CHLORIDE\SODIUM BICARBONATE\SODIUM CHLORIDE
     Dates: start: 20140428
  39. PREDNISOLON [Concomitant]
     Active Substance: PREDNISOLONE
     Dates: start: 20140403, end: 20140403
  40. PREDNISOLON [Concomitant]
     Active Substance: PREDNISOLONE
     Dates: start: 20140404, end: 20140404
  41. CLEXAN [Concomitant]
     Dates: start: 20130612, end: 20130612
  42. CLEXAN [Concomitant]
     Dates: start: 20131010, end: 20131010
  43. LEVOFLOXACIN [Concomitant]
     Active Substance: LEVOFLOXACIN
     Dates: start: 20130711, end: 20130711
  44. OMEP [Concomitant]
     Active Substance: OMEPRAZOLE
     Dates: start: 20131010, end: 20131010
  45. MOVICOL [Concomitant]
     Active Substance: POLYETHYLENE GLYCOL 3350\POTASSIUM CHLORIDE\SODIUM BICARBONATE\SODIUM CHLORIDE
     Dates: start: 20140407
  46. NOVAMINSULFON [Concomitant]
     Active Substance: METAMIZOLE
     Dates: start: 20140114, end: 20140114
  47. FAMPYRA [Concomitant]
     Active Substance: DALFAMPRIDINE
     Dates: start: 201201
  48. PANTOZOL [Concomitant]
     Active Substance: PANTOPRAZOLE SODIUM
     Dates: start: 20130311, end: 20130313
  49. TRIAMCINOLON COMPO [Concomitant]
     Dosage: 40 MG, QD
     Dates: start: 20140116, end: 20140116
  50. TRIAMCINOLON COMPO [Concomitant]
     Dosage: 40 MG, QD
     Dates: start: 20140428, end: 20140428

REACTIONS (6)
  - Sudden hearing loss [Not Recovered/Not Resolved]
  - Urinary retention [Recovered/Resolved]
  - Impaired gastric emptying [Recovered/Resolved]
  - Cystitis [Recovered/Resolved]
  - Urinary tract infection [Recovered/Resolved]
  - Lymphopenia [Recovered/Resolved]

NARRATIVE: CASE EVENT DATE: 20130708
